FAERS Safety Report 8456628-5 (Version None)
Quarter: 2012Q2

REPORT INFORMATION
  Report Type: 
  Country: None (occurrence: None)
  Receive Date: 20120621
  Receipt Date: 20120613
  Transmission Date: 20120825
  Serious: Yes (Hospitalization, Other)
  Sender: FDA-Public Use
  Company Number: JP-ROCHE-745419

PATIENT
  Age: 65 Year
  Sex: Female
  Weight: 55 kg

DRUGS (8)
  1. OXALIPLATIN [Concomitant]
     Dosage: NOTE: DOSAGE IS UNCERTAIN.
     Route: 041
  2. FLUOROURACIL [Concomitant]
     Dosage: ROUTE: INTRAVENOUS BOLUS
     Route: 040
  3. LEVOLEUCOVORIN CALCIUM [Concomitant]
     Dosage: NOTE: DOSAGE IS UNCERTAIN
     Route: 041
     Dates: start: 20100101, end: 20100101
  4. FLUOROURACIL [Concomitant]
     Route: 041
     Dates: start: 20100101
  5. AVASTIN [Suspect]
     Indication: COLON CANCER METASTATIC
     Dosage: NOTE: DOSAGE IS UNCERTAIN.
     Route: 041
     Dates: start: 20100101, end: 20100101
  6. AVASTIN [Suspect]
  7. FLUOROURACIL [Concomitant]
     Route: 041
     Dates: start: 20100101, end: 20100101
  8. FLUOROURACIL [Concomitant]
     Dosage: ROUTE: INTRAVENOUS DRIP, NOTE: DOSAGE IS UNCERTAIN.

REACTIONS (3)
  - ISCHAEMIA [None]
  - INTESTINAL OBSTRUCTION [None]
  - ULCER [None]
